FAERS Safety Report 14842233 (Version 3)
Quarter: 2018Q2

REPORT INFORMATION
  Report Type: Spontaneous
  Country: US (occurrence: US)
  Receive Date: 20180503
  Receipt Date: 20180528
  Transmission Date: 20180711
  Serious: No
  Sender: FDA-Public Use
  Company Number: US-BEH-2018090300

PATIENT
  Age: 4 Year
  Sex: Male

DRUGS (1)
  1. HIZENTRA [Suspect]
     Active Substance: HUMAN IMMUNOGLOBULIN G
     Indication: IMMUNODEFICIENCY COMMON VARIABLE
     Dosage: 2 G, QW
     Route: 058
     Dates: start: 20160301

REACTIONS (5)
  - Nasal congestion [Unknown]
  - Headache [Unknown]
  - Gastrointestinal disorder [Unknown]
  - Paranasal sinus hypersecretion [Unknown]
  - Pain [Unknown]

NARRATIVE: CASE EVENT DATE: 20180430
